FAERS Safety Report 25016891 (Version 1)
Quarter: 2025Q1

REPORT INFORMATION
  Report Type: Spontaneous
  Country: FR (occurrence: FR)
  Receive Date: 20250227
  Receipt Date: 20250227
  Transmission Date: 20250409
  Serious: Yes (Other)
  Sender: REGENERON
  Company Number: FR-BAYER-2025A025882

PATIENT
  Age: 68 Year
  Sex: Female

DRUGS (1)
  1. EYLEA HD [Suspect]
     Active Substance: AFLIBERCEPT
     Indication: Product used for unknown indication
     Dates: start: 202502

REACTIONS (5)
  - Macular oedema [Unknown]
  - Chorioretinitis [Unknown]
  - Vitritis [Unknown]
  - Conjunctival hyperaemia [Unknown]
  - Ocular hyperaemia [Unknown]
